FAERS Safety Report 4867302-6 (Version None)
Quarter: 2005Q4

REPORT INFORMATION
  Report Type: 
  Country: None (occurrence: None)
  Receive Date: 20051227
  Receipt Date: 20051227
  Transmission Date: 20060501
  Serious: Yes (Other)
  Sender: FDA-Public Use
  Company Number: None

PATIENT
  Age: 91 Year
  Sex: Male
  Weight: 67.8 kg

DRUGS (14)
  1. SPIRONOLACTONE [Suspect]
  2. LEVOTHYROXINE SODIUM [Concomitant]
  3. POLYVINYL ALCOHOL/SODIUM CHLORIDE [Concomitant]
  4. OMEPRAZOLE [Concomitant]
  5. METOPROLOL [Concomitant]
  6. SIMVASTATIN [Concomitant]
  7. MAGNESIUM HYDROXIDE TAB [Concomitant]
  8. ACETAMINOPHEN [Concomitant]
  9. ENALAPRIL [Concomitant]
  10. NITROGLYCERIN [Concomitant]
  11. ASPIRIN [Concomitant]
  12. NITROGLYCERIN [Concomitant]
  13. LEVOFLOXACIN [Concomitant]
  14. CEFTRIAXONE [Concomitant]

REACTIONS (1)
  - RASH [None]
